FAERS Safety Report 24765434 (Version 1)
Quarter: 2024Q4

REPORT INFORMATION
  Report Type: Spontaneous
  Country: US (occurrence: None)
  Receive Date: 20241220
  Receipt Date: 20241220
  Transmission Date: 20250114
  Serious: Yes (Hospitalization)
  Sender: Public
  Company Number: None

PATIENT
  Sex: Female

DRUGS (1)
  1. ARANESP [Suspect]
     Active Substance: DARBEPOETIN ALFA
     Indication: Anaemia
     Dosage: FREQUENCY : MONTHLY;?
     Route: 058
     Dates: start: 20240709

REACTIONS (3)
  - Blood sodium decreased [None]
  - Abdominal pain upper [None]
  - Therapy interrupted [None]
